FAERS Safety Report 8016047-2 (Version None)
Quarter: 2011Q4

REPORT INFORMATION
  Report Type: 
  Country: None (occurrence: None)
  Receive Date: 20111223
  Receipt Date: 20111212
  Transmission Date: 20120403
  Serious: Yes (Hospitalization, Other)
  Sender: FDA-Public Use
  Company Number: ACO_28511_2011

PATIENT
  Age: 45 Year
  Sex: Female

DRUGS (5)
  1. TOLPERISONE (TOLPERISONE) [Concomitant]
  2. ANALGESICS [Concomitant]
  3. BETAFERON [Concomitant]
  4. THYROID THERAPY [Concomitant]
  5. FAMPYRA (DALFAMPRIDINE) TABLET, 10MG [Suspect]
     Indication: MULTIPLE SCLEROSIS
     Dosage: 10 MG, BID, ORAL
     Route: 048
     Dates: start: 20110910, end: 20111126

REACTIONS (5)
  - GRAND MAL CONVULSION [None]
  - BODY TEMPERATURE INCREASED [None]
  - BACK PAIN [None]
  - BLOOD CALCIUM DECREASED [None]
  - CEREBRAL HAEMORRHAGE [None]
